FAERS Safety Report 5857456-7 (Version None)
Quarter: 2008Q3

REPORT INFORMATION
  Report Type: 
  Country: None (occurrence: None)
  Receive Date: 20080818
  Receipt Date: 20080508
  Transmission Date: 20090109
  Serious: No
  Sender: FDA-Public Use
  Company Number: TPA2008A00496

PATIENT
  Age: 51 Year
  Sex: Female
  Weight: 87.4081 kg

DRUGS (4)
  1. ROZEREM [Suspect]
     Indication: INSOMNIA
     Dosage: 8 MG, 1 IN 1 D, PER ORAL ; PARAVENOUS
     Route: 048
     Dates: start: 20080118, end: 20080401
  2. ROZEREM [Suspect]
     Indication: INSOMNIA
     Dosage: 8 MG, 1 IN 1 D, PER ORAL ; PARAVENOUS
     Route: 048
     Dates: start: 20080101
  3. EFFEXOR [Concomitant]
  4. LUNESTA [Concomitant]

REACTIONS (2)
  - NIGHTMARE [None]
  - SLEEP TALKING [None]
